FAERS Safety Report 6150663-8 (Version None)
Quarter: 2009Q2

REPORT INFORMATION
  Report Type: 
  Country: None (occurrence: None)
  Receive Date: 20090409
  Receipt Date: 20090401
  Transmission Date: 20091009
  Serious: Yes (Hospitalization)
  Sender: FDA-Public Use
  Company Number: US-ABBOTT-09P-163-0565890-00

PATIENT
  Sex: Female
  Weight: 52.21 kg

DRUGS (4)
  1. KALETRA [Suspect]
     Indication: HIV INFECTION
     Dosage: 2 TABS IN AM AND 2 TABLETS IN PM
     Route: 048
     Dates: start: 20090301
  2. TRUVADA [Suspect]
     Indication: HIV INFECTION
     Route: 048
     Dates: start: 20090313
  3. TRUVADA [Suspect]
     Route: 048
     Dates: start: 20090301, end: 20090301
  4. VALCYTE [Suspect]
     Indication: HIV INFECTION
     Dosage: FORM: 450 MILLIGRAMS
     Route: 048
     Dates: start: 20090301

REACTIONS (10)
  - ABNORMAL FAECES [None]
  - ASTHENIA [None]
  - DIARRHOEA [None]
  - FEELING HOT [None]
  - HEADACHE [None]
  - MOBILITY DECREASED [None]
  - PNEUMONIA [None]
  - PYREXIA [None]
  - RASH [None]
  - VOMITING [None]
